FAERS Safety Report 4574876-1 (Version None)
Quarter: 2005Q1

REPORT INFORMATION
  Report Type: 
  Country: None (occurrence: None)
  Receive Date: 20050208
  Receipt Date: 20040726
  Transmission Date: 20050727
  Serious: No
  Sender: FDA-Public Use
  Company Number: US-GLAXOSMITHKLINE-A0519719A

PATIENT
  Age: 46 Year
  Sex: Female

DRUGS (5)
  1. PAXIL CR [Suspect]
     Indication: PANIC DISORDER
     Dosage: 50MG PER DAY
     Route: 048
  2. VIOXX [Concomitant]
  3. ATENOLOL [Concomitant]
  4. AMBIEN [Concomitant]
  5. XANAX [Concomitant]

REACTIONS (8)
  - AGITATION [None]
  - ANXIETY [None]
  - BLOOD PRESSURE INCREASED [None]
  - DIZZINESS [None]
  - DRUG WITHDRAWAL SYNDROME [None]
  - FORMICATION [None]
  - NERVOUSNESS [None]
  - TINNITUS [None]
